FAERS Safety Report 6545306-5 (Version None)
Quarter: 2010Q1

REPORT INFORMATION
  Report Type: 
  Country: None (occurrence: None)
  Receive Date: 20100121
  Receipt Date: 20100104
  Transmission Date: 20100710
  Serious: Yes (Death)
  Sender: FDA-Public Use
  Company Number: US-BAYER-201011845GPV

PATIENT
  Age: 61 Year
  Sex: Male

DRUGS (2)
  1. IBUPROFEN [Suspect]
     Route: 048
  2. SALICYLATES [Suspect]
     Route: 048

REACTIONS (2)
  - DRUG LEVEL ABOVE THERAPEUTIC [None]
  - DRUG TOXICITY [None]
